FAERS Safety Report 5754347-7 (Version None)
Quarter: 2008Q2

REPORT INFORMATION
  Report Type: 
  Country: None (occurrence: None)
  Receive Date: 20080530
  Receipt Date: 20080523
  Transmission Date: 20081010
  Serious: Yes (Other)
  Sender: FDA-Public Use
  Company Number: PHMT2007CA00508

PATIENT
  Sex: Female

DRUGS (4)
  1. SANDOSTATIN LAR [Suspect]
     Indication: CARCINOID SYNDROME
     Dosage: 30 MG, EVERY MONTH
     Route: 030
     Dates: start: 20060301
  2. SANDOSTATIN [Suspect]
     Route: 058
  3. DRUG THERAPY NOS [Concomitant]
     Dosage: CONOMITANT MEDICATIONS
  4. ANTIHYPERTENSIVE DRUGS [Concomitant]

REACTIONS (5)
  - HAEMATURIA [None]
  - NAUSEA [None]
  - NEPHROLITHIASIS [None]
  - PAIN [None]
  - VOMITING [None]
